FAERS Safety Report 16333616 (Version 1)
Quarter: 2019Q2

REPORT INFORMATION
  Report Type: Report from Study
  Country: IT (occurrence: IT)
  Receive Date: 20190520
  Receipt Date: 20190520
  Transmission Date: 20190711
  Serious: Yes (Hospitalization)
  Sender: FDA-Public Use
  Company Number: IT-JNJFOC-20190524299

PATIENT
  Age: 72 Year
  Sex: Female

DRUGS (4)
  1. TRIATEC [Concomitant]
     Route: 065
  2. XARELTO [Suspect]
     Active Substance: RIVAROXABAN
     Indication: ATRIAL FIBRILLATION
     Route: 048
     Dates: start: 20181101, end: 20190430
  3. ALMARYTM [Suspect]
     Active Substance: FLECAINIDE ACETATE
     Indication: ARRHYTHMIA
     Route: 048
     Dates: start: 20181101, end: 20190430
  4. PANTORC [Concomitant]
     Active Substance: PANTOPRAZOLE SODIUM
     Route: 065

REACTIONS (3)
  - Confusional state [Unknown]
  - Cerebral haemorrhage [Unknown]
  - Aphasia [Unknown]

NARRATIVE: CASE EVENT DATE: 20190430
